FAERS Safety Report 20968938 (Version 1)
Quarter: 2022Q2

REPORT INFORMATION
  Report Type: Spontaneous
  Country: US (occurrence: US)
  Receive Date: 20220616
  Receipt Date: 20220616
  Transmission Date: 20220721
  Serious: Yes (Other)
  Sender: FDA-Public Use
  Company Number: US-AMWAY-2022AMY00014

PATIENT
  Age: 30 Year
  Sex: Female
  Weight: 58.957 kg

DRUGS (5)
  1. ARTISTRY SKIN NUTRITION HYDRATING DAY [Suspect]
     Active Substance: AVOBENZONE\OCTISALATE\OCTOCRYLENE
     Dosage: UNK UNK, AS DIRECTED, ONCE
     Dates: start: 20220520, end: 20220520
  2. COSMETICS [Suspect]
     Active Substance: COSMETICS
     Dosage: UNK UNK, AS DIRECTED TO FACE, ONCE
     Route: 061
     Dates: start: 20220520, end: 20220520
  3. COSMETICS [Suspect]
     Active Substance: COSMETICS
     Dosage: UNK UNK, AS DIRECTED TO FACE, ONCE
     Route: 061
     Dates: start: 20220520, end: 20220520
  4. COSMETICS [Suspect]
     Active Substance: COSMETICS
     Dosage: UNK UNK, AS DIRECTED, ONCE
     Dates: start: 20220520, end: 20220520
  5. COSMETICS [Suspect]
     Active Substance: COSMETICS
     Dosage: UNK UNK, AS DIRECTED, ONCE
     Dates: start: 20220520, end: 20220520

REACTIONS (3)
  - Dermatitis contact [Recovering/Resolving]
  - Acne [Recovering/Resolving]
  - Burning sensation [Not Recovered/Not Resolved]

NARRATIVE: CASE EVENT DATE: 20220521
